FAERS Safety Report 7524006-9 (Version None)
Quarter: 2011Q2

REPORT INFORMATION
  Report Type: 
  Country: None (occurrence: None)
  Receive Date: 20110604
  Receipt Date: 20110520
  Transmission Date: 20111010
  Serious: Yes (Hospitalization)
  Sender: FDA-Public Use
  Company Number: US-WATSON-2011-06756

PATIENT
  Age: 22 Year
  Sex: Male

DRUGS (2)
  1. PREDNISONE [Suspect]
     Indication: ANTIINFLAMMATORY THERAPY
     Dosage: 60 MG, DAILY
     Dates: start: 20090801
  2. FLUOCINOLONE ACETONIDE [Suspect]
     Indication: ANTIINFLAMMATORY THERAPY
     Dosage: UNK
     Dates: start: 20080701, end: 20090701

REACTIONS (2)
  - NECROTISING RETINITIS [None]
  - HERPES SIMPLEX [None]
